FAERS Safety Report 8104701-3 (Version None)
Quarter: 2012Q1

REPORT INFORMATION
  Report Type: 
  Country: None (occurrence: None)
  Receive Date: 20120201
  Receipt Date: 20120125
  Transmission Date: 20120608
  Serious: Yes (Other)
  Sender: FDA-Public Use
  Company Number: FR-ABBOTT-12P-056-0897636-00

PATIENT
  Sex: Female

DRUGS (4)
  1. ABACAVIR SULFATE [Suspect]
     Indication: HIV INFECTION
     Dosage: 600MG/300MG, 1 DOSAGE FORM DAILY
     Route: 048
     Dates: start: 20110414
  2. NORVIR [Suspect]
     Indication: HIV INFECTION
     Route: 048
     Dates: start: 20110316
  3. TRUVADA [Suspect]
     Indication: PRODUCT USED FOR UNKNOWN INDICATION
  4. PREZISTA [Suspect]
     Indication: HIV INFECTION
     Dosage: 600MG DAILY, (300MG, 2 IN 1 DAY)
     Route: 048
     Dates: start: 20110316

REACTIONS (3)
  - HYPERCHOLESTEROLAEMIA [None]
  - RENAL FAILURE ACUTE [None]
  - DYSLIPIDAEMIA [None]
